FAERS Safety Report 19182874 (Version 11)
Quarter: 2021Q3

REPORT INFORMATION
  Report Type: Spontaneous
  Country: CA (occurrence: CA)
  Receive Date: 20210427
  Receipt Date: 20210930
  Transmission Date: 20211014
  Serious: Yes (Hospitalization, Other)
  Sender: FDA-Public Use
  Company Number: CA-CELLTRION INC.-2021CA000278

PATIENT

DRUGS (11)
  1. INFLECTRA [Suspect]
     Active Substance: INFLIXIMAB-DYYB
     Dosage: 900 MG, 0, 2, 6 WEEKS (RE?INDUCTION), THEN EVERY 4 WEEKS
     Route: 042
     Dates: start: 20210904
  2. INFLECTRA [Suspect]
     Active Substance: INFLIXIMAB-DYYB
     Dosage: 900 MG, 0, 2, 6 WEEKS (RE?INDUCTION), THEN EVERY 4 WEEKS
     Route: 042
     Dates: start: 20210920
  3. INFLECTRA [Suspect]
     Active Substance: INFLIXIMAB-DYYB
     Dosage: 900 MG, 0, 2, 6 WEEKS (RE?INDUCTION), THEN EVERY 4 WEEKS
     Route: 042
     Dates: start: 20210710
  4. INFLECTRA [Suspect]
     Active Substance: INFLIXIMAB-DYYB
     Dosage: 900 MG, 0, 2, 6 WEEKS (RE?INDUCTION), THEN EVERY 4 WEEKS
     Route: 042
     Dates: start: 20210501
  5. PREDNISONE. [Concomitant]
     Active Substance: PREDNISONE
     Indication: CROHN^S DISEASE
     Dosage: 40 MG, 1X/DAY
     Dates: start: 2021
  6. INFLECTRA [Suspect]
     Active Substance: INFLIXIMAB-DYYB
     Dosage: 900 MG, 0, 2, 6 WEEKS (RE?INDUCTION), THEN EVERY 4 WEEKS
     Route: 042
     Dates: start: 20210515
  7. INFLECTRA [Suspect]
     Active Substance: INFLIXIMAB-DYYB
     Dosage: 600 MG, 0, 6, THEN EVERY 4 WEEKS
     Route: 042
     Dates: start: 20210315
  8. INFLECTRA [Suspect]
     Active Substance: INFLIXIMAB-DYYB
     Indication: CROHN^S DISEASE
     Dosage: 600 MG, 0, 2, 6, THEN EVERY 4 WEEKS (INDUCTION DOSES AT WEEK 0 AND 2)
     Route: 042
     Dates: start: 20210301
  9. INFLECTRA [Suspect]
     Active Substance: INFLIXIMAB-DYYB
     Dosage: 900 MG, 0, 2, 6 WEEKS (RE?INDUCTION), THEN EVERY 4 WEEKS
     Route: 042
     Dates: start: 20210420
  10. INFLECTRA [Suspect]
     Active Substance: INFLIXIMAB-DYYB
     Dosage: 900 MG, 0, 2, 6 WEEKS (RE?INDUCTION), THEN EVERY 4 WEEKS
     Route: 042
     Dates: start: 20210612
  11. INFLECTRA [Suspect]
     Active Substance: INFLIXIMAB-DYYB
     Dosage: 900 MG, 0, 2, 6 WEEKS (RE?INDUCTION), THEN EVERY 4 WEEKS
     Route: 042
     Dates: start: 20210807

REACTIONS (9)
  - Off label use [Unknown]
  - Malaise [Unknown]
  - Arthralgia [Unknown]
  - Aphthous ulcer [Unknown]
  - Condition aggravated [Not Recovered/Not Resolved]
  - Weight increased [Not Recovered/Not Resolved]
  - Anxiety [Unknown]
  - Abdominal discomfort [Unknown]
  - Dehydration [Recovered/Resolved]

NARRATIVE: CASE EVENT DATE: 2021
